FAERS Safety Report 7468805-0 (Version None)
Quarter: 2011Q2

REPORT INFORMATION
  Report Type: 
  Country: None (occurrence: None)
  Receive Date: 20110510
  Receipt Date: 20110503
  Transmission Date: 20111010
  Serious: No
  Sender: FDA-Public Use
  Company Number: US-BIOGENIDEC-2011BI016527

PATIENT
  Age: 62 Year
  Sex: Male

DRUGS (1)
  1. TYSABRI [Suspect]
     Indication: MULTIPLE SCLEROSIS
     Route: 042
     Dates: start: 20080328

REACTIONS (4)
  - GLOMERULAR FILTRATION RATE DECREASED [None]
  - RED CELL DISTRIBUTION WIDTH INCREASED [None]
  - LOW DENSITY LIPOPROTEIN INCREASED [None]
  - RENAL IMPAIRMENT [None]
